FAERS Safety Report 10682530 (Version 1)
Quarter: 2014Q4

REPORT INFORMATION
  Report Type: Spontaneous
  Country: US (occurrence: None)
  Receive Date: 20141229
  Receipt Date: 20141229
  Transmission Date: 20150529
  Serious: No
  Sender: FDA-Public Use
  Company Number: None

PATIENT
  Age: 49 Year
  Sex: Male
  Weight: 60 kg

DRUGS (1)
  1. MIRVASO [Suspect]
     Active Substance: BRIMONIDINE TARTRATE
     Indication: ROSACEA
     Dosage: PEE SIZE ONCE DAILY APPLED TO A SURFACE USUALLY THE SKIN

REACTIONS (3)
  - Erythema [None]
  - Rosacea [None]
  - Condition aggravated [None]

NARRATIVE: CASE EVENT DATE: 20141228
